FAERS Safety Report 9193526 (Version 1)
Quarter: 2013Q1

REPORT INFORMATION
  Report Type: Spontaneous
  Country: GR (occurrence: GR)
  Receive Date: 20130327
  Receipt Date: 20130327
  Transmission Date: 20140127
  Serious: Yes (Hospitalization)
  Sender: FDA-Public Use
  Company Number: GR-ROCHE-GNE210072

PATIENT
  Age: 38 Year
  Sex: Female

DRUGS (2)
  1. MABTHERA [Suspect]
     Indication: NEPHROPATHY
     Route: 042
     Dates: start: 20030615
  2. CYCLOPHOSPHAMID [Concomitant]

REACTIONS (5)
  - Posterior reversible encephalopathy syndrome [Recovered/Resolved]
  - Headache [Recovered/Resolved]
  - Convulsion [Recovered/Resolved]
  - Vision blurred [Recovered/Resolved]
  - Hypertension [Recovered/Resolved]
